FAERS Safety Report 9054451 (Version 1)
Quarter: 2013Q1

REPORT INFORMATION
  Report Type: Spontaneous
  Country: US (occurrence: US)
  Receive Date: 20130208
  Receipt Date: 20130208
  Transmission Date: 20140127
  Serious: Yes (Other)
  Sender: FDA-Public Use
  Company Number: US-GLAXOSMITHKLINE-A0975191A

PATIENT
  Age: 58 Year
  Sex: Female

DRUGS (3)
  1. PAXIL [Suspect]
     Indication: PANIC ATTACK
     Dosage: 20MG PER DAY
     Route: 048
     Dates: start: 1998
  2. SIMVASTATIN [Concomitant]
  3. PROZAC [Concomitant]

REACTIONS (1)
  - Glaucoma [Unknown]
